FAERS Safety Report 24202143 (Version 5)
Quarter: 2025Q3

REPORT INFORMATION
  Report Type: Spontaneous
  Country: US (occurrence: US)
  Receive Date: 20240812
  Receipt Date: 20250924
  Transmission Date: 20251020
  Serious: Yes (Hospitalization, Other)
  Sender: SUNOVION
  Company Number: US-SUMITOMO PHARMA SWITZERLAND GMBH-2024MYSCI0700564

PATIENT
  Age: 73 Year
  Sex: Male

DRUGS (28)
  1. ORGOVYX [Suspect]
     Active Substance: RELUGOLIX
     Indication: Prostate cancer
     Dosage: 360 MILLIGRAM, ONE TIME DOSE
     Route: 048
  2. ORGOVYX [Suspect]
     Active Substance: RELUGOLIX
     Dosage: 120 MILLIGRAM, QD
     Route: 048
  3. ORGOVYX [Suspect]
     Active Substance: RELUGOLIX
     Dosage: 120 MG, QD
     Route: 048
     Dates: start: 202406
  4. ROSUVASTATIN [Concomitant]
     Active Substance: ROSUVASTATIN
  5. HYDROCHLOROTHIAZIDE\VALSARTAN [Concomitant]
     Active Substance: HYDROCHLOROTHIAZIDE\VALSARTAN
  6. FARXIGA [Concomitant]
     Active Substance: DAPAGLIFLOZIN PROPANEDIOL
  7. AMIODARONE [Concomitant]
     Active Substance: AMIODARONE
  8. AZELASTINE [Concomitant]
     Active Substance: AZELASTINE
  9. TAMSULOSIN [Concomitant]
     Active Substance: TAMSULOSIN
  10. VITAMIN D3 [Concomitant]
     Active Substance: CHOLECALCIFEROL
  11. COENZYME Q10 [Concomitant]
     Active Substance: DIETARY SUPPLEMENT\UBIDECARENONE
  12. Ventolin hfa inhalation [Concomitant]
  13. GUAIFENESIN [Concomitant]
     Active Substance: GUAIFENESIN
  14. BUDESONIDE [Concomitant]
     Active Substance: BUDESONIDE
  15. SILDENAFIL CITRATE [Concomitant]
     Active Substance: SILDENAFIL CITRATE
  16. BISOPROLOL FUMARATE [Concomitant]
     Active Substance: BISOPROLOL FUMARATE
  17. SPIRONOLACTONE [Concomitant]
     Active Substance: SPIRONOLACTONE
  18. ASPIRIN [Concomitant]
     Active Substance: ASPIRIN
  19. PREDNISONE [Concomitant]
     Active Substance: PREDNISONE
  20. MECLIZINE HYDROCHLORIDE [Concomitant]
     Active Substance: MECLIZINE HYDROCHLORIDE
  21. EPIPEN [Concomitant]
     Active Substance: EPINEPHRINE
  22. FLUTICASONE PROPIONATE [Concomitant]
     Active Substance: FLUTICASONE PROPIONATE
  23. ESOMEPRAZOLE MAGNESIUM [Concomitant]
     Active Substance: ESOMEPRAZOLE MAGNESIUM
  24. BREZTRI [Concomitant]
     Active Substance: BUDESONIDE\FORMOTEROL\GLYCOPYRROLATE
  25. SINGULAIR [Concomitant]
     Active Substance: MONTELUKAST SODIUM
  26. FUROSEMIDE [Concomitant]
     Active Substance: FUROSEMIDE
  27. MIRALAX [Concomitant]
     Active Substance: POLYETHYLENE GLYCOL 3350
  28. MEXILETINE [Concomitant]
     Active Substance: MEXILETINE

REACTIONS (10)
  - Pneumonia [Unknown]
  - Tachycardia [Unknown]
  - Wheezing [Unknown]
  - Chills [Unknown]
  - Cough [Unknown]
  - Muscle spasms [Unknown]
  - Fatigue [Unknown]
  - Weight increased [Unknown]
  - Hot flush [Unknown]
  - Constipation [Unknown]
